FAERS Safety Report 6579872-0 (Version None)
Quarter: 2010Q1

REPORT INFORMATION
  Report Type: 
  Country: None (occurrence: None)
  Receive Date: 20100209
  Receipt Date: 20100209
  Transmission Date: 20100710
  Serious: No
  Sender: FDA-Public Use
  Company Number: None

PATIENT
  Age: 46 Year
  Sex: Male
  Weight: 99.7913 kg

DRUGS (2)
  1. CHANTIX [Suspect]
     Indication: SMOKING CESSATION THERAPY
     Dosage: 0.5 2 PER DAY WITHIN 7
     Dates: start: 20080125, end: 20080425
  2. CHANTIX [Suspect]
     Dosage: 1.0 2 PER DAY AFTER 7

REACTIONS (6)
  - DIABETES MELLITUS [None]
  - GAIT DISTURBANCE [None]
  - LOSS OF EMPLOYMENT [None]
  - MARITAL PROBLEM [None]
  - NEUROPATHY PERIPHERAL [None]
  - PERSONALITY CHANGE [None]
